FAERS Safety Report 21927666 (Version 2)
Quarter: 2023Q1

REPORT INFORMATION
  Report Type: Spontaneous
  Country: US (occurrence: US)
  Receive Date: 20230130
  Receipt Date: 20230323
  Transmission Date: 20230417
  Serious: No
  Sender: FDA-Public Use
  Company Number: US-AMGEN-USASP2023009649

PATIENT
  Age: 49 Year
  Sex: Male

DRUGS (2)
  1. AVSOLA [Suspect]
     Active Substance: INFLIXIMAB-AXXQ
     Indication: Product used for unknown indication
     Dosage: UNK UNK, UNK
     Route: 065
  2. AVSOLA [Suspect]
     Active Substance: INFLIXIMAB-AXXQ
     Dosage: UNK UNK, UNK
     Route: 065

REACTIONS (2)
  - Adverse event [Unknown]
  - Personality change [Unknown]

NARRATIVE: CASE EVENT DATE: 20230113
